FAERS Safety Report 10213218 (Version 1)
Quarter: 2014Q2

REPORT INFORMATION
  Report Type: Spontaneous
  Country: CA (occurrence: CA)
  Receive Date: 20140603
  Receipt Date: 20140603
  Transmission Date: 20141212
  Serious: Yes (Other)
  Sender: FDA-Public Use
  Company Number: CA-AMGEN-CANSP2014039403

PATIENT
  Age: 83 Year
  Sex: Female

DRUGS (8)
  1. PROLIA [Suspect]
     Indication: OSTEOPOROSIS POSTMENOPAUSAL
     Dosage: 60 MG, UNK
     Route: 065
     Dates: start: 20120526
  2. VITALUX                            /00322001/ [Concomitant]
  3. VITAMIN B12                        /00056201/ [Concomitant]
  4. LIPITOR [Concomitant]
  5. LOTENSIN                           /00371202/ [Concomitant]
  6. HYDROCHLOROTHIAZIDE [Concomitant]
  7. VENTOLIN                           /00139501/ [Concomitant]
  8. ADVAIR [Concomitant]

REACTIONS (3)
  - Macular degeneration [Not Recovered/Not Resolved]
  - Stress [Not Recovered/Not Resolved]
  - Gastrooesophageal reflux disease [Not Recovered/Not Resolved]
